FAERS Safety Report 11188737 (Version 1)
Quarter: 2015Q2

REPORT INFORMATION
  Report Type: Report from Study
  Country: KR (occurrence: KR)
  Receive Date: 20150615
  Receipt Date: 20150615
  Transmission Date: 20150821
  Serious: Yes (Hospitalization)
  Sender: FDA-Public Use
  Company Number: KR-ABBVIE-15K-286-1405610-00

PATIENT
  Sex: Male
  Weight: 24.3 kg

DRUGS (7)
  1. NAPROXEN. [Concomitant]
     Active Substance: NAPROXEN
     Indication: RHEUMATOID ARTHRITIS
     Dates: start: 20100510
  2. DEXAMETHASONE. [Concomitant]
     Active Substance: DEXAMETHASONE
     Indication: ANTIINFLAMMATORY THERAPY
     Dates: start: 20140515, end: 20140516
  3. CIMETIDINE [Concomitant]
     Active Substance: CIMETIDINE
     Indication: GASTROINTESTINAL DISORDER
     Dates: start: 20131030
  4. PREDNISOLONE. [Concomitant]
     Active Substance: PREDNISOLONE
     Indication: RHEUMATOID ARTHRITIS
     Dates: start: 20120328
  5. METHOTREXATE [Concomitant]
     Active Substance: METHOTREXATE
     Indication: RHEUMATOID ARTHRITIS
     Dates: start: 20140515, end: 20140515
  6. SULFASALAZINE. [Concomitant]
     Active Substance: SULFASALAZINE
     Indication: RHEUMATOID ARTHRITIS
     Dates: start: 20131030
  7. HUMIRA [Suspect]
     Active Substance: ADALIMUMAB
     Indication: PRODUCT USED FOR UNKNOWN INDICATION
     Route: 065

REACTIONS (1)
  - Skin lesion [Recovered/Resolved]

NARRATIVE: CASE EVENT DATE: 20140507
